FAERS Safety Report 5797527-7 (Version None)
Quarter: 2008Q3

REPORT INFORMATION
  Report Type: 
  Country: None (occurrence: None)
  Receive Date: 20080702
  Receipt Date: 20080627
  Transmission Date: 20090109
  Serious: Yes (Other)
  Sender: FDA-Public Use
  Company Number: GB-RANBAXY-2008RR-16027

PATIENT

DRUGS (5)
  1. ATENOLOL [Suspect]
     Indication: HYPERTENSION
  2. PROPRANOLOL [Suspect]
     Indication: MIGRAINE
  3. SILDENAFIL CITRATE [Suspect]
  4. DOSULEPIN [Concomitant]
     Indication: DEPRESSION
  5. HYDROCORTISONE [Concomitant]

REACTIONS (2)
  - HYPOPITUITARISM [None]
  - PITUITARY HAEMORRHAGE [None]
